FAERS Safety Report 8884835 (Version 2)
Quarter: 2013Q1

REPORT INFORMATION
  Report Type: Spontaneous
  Country: JP (occurrence: JP)
  Receive Date: 20121105
  Receipt Date: 20130208
  Transmission Date: 20140127
  Serious: Yes (Life-Threatening, Hospitalization)
  Sender: FDA-Public Use
  Company Number: JP-BRISTOL-MYERS SQUIBB COMPANY-17076977

PATIENT
  Age: 75 Year
  Sex: Male
  Weight: 56 kg

DRUGS (6)
  1. ORENCIA FOR INJ 250 MG/VIAL [Suspect]
     Indication: RHEUMATOID ARTHRITIS
     Dosage: 2:13AUG12,?3:27AUG12,?4:25SEP12
     Route: 041
     Dates: start: 20120730, end: 20120925
  2. RHEUMATREX [Suspect]
     Indication: RHEUMATOID ARTHRITIS
     Dosage: 10MG/WK AT A DOSE RANGED 2-4MG
     Route: 048
     Dates: start: 20061017, end: 20120925
  3. FOLIAMIN [Concomitant]
     Dosage: TABS
     Route: 048
     Dates: start: 20061017, end: 20120925
  4. PREDNISOLONE [Concomitant]
     Dosage: TABS
     Route: 048
     Dates: start: 20061031
  5. MOBIC [Concomitant]
     Dosage: TABS
     Route: 048
     Dates: start: 20061017
  6. TAKEPRON [Concomitant]
     Dosage: TABS
     Route: 048
     Dates: start: 20070427

REACTIONS (1)
  - Interstitial lung disease [Recovered/Resolved]
